FAERS Safety Report 4733353-5 (Version None)
Quarter: 2005Q3

REPORT INFORMATION
  Report Type: 
  Country: None (occurrence: None)
  Receive Date: 20050803
  Receipt Date: 20050722
  Transmission Date: 20060218
  Serious: Yes (Other)
  Sender: FDA-Public Use
  Company Number: DE-BRISTOL-MYERS SQUIBB COMPANY-13047915

PATIENT
  Age: 59 Year
  Sex: Male

DRUGS (1)
  1. VOLON-A INJ 40 MG/ML [Suspect]
     Indication: BACK PAIN
     Route: 030
     Dates: start: 20050411, end: 20050411

REACTIONS (1)
  - CARDIAC FAILURE [None]
